FAERS Safety Report 13659356 (Version 1)
Quarter: 2017Q2

REPORT INFORMATION
  Report Type: Spontaneous
  Country: US (occurrence: US)
  Receive Date: 20170616
  Receipt Date: 20170616
  Transmission Date: 20170830
  Serious: Yes (Hospitalization)
  Sender: FDA-Public Use
  Company Number: None

PATIENT
  Age: 45 Year
  Sex: Female
  Weight: 147.1 kg

DRUGS (10)
  1. PERCOCET [Suspect]
     Active Substance: ACETAMINOPHEN\OXYCODONE HYDROCHLORIDE
     Indication: PAIN
     Dosage: DATES OF USE - CHRONIC?DOSE - 1-2 TABLETS?FREQUENCY - Q4HRS PRN
     Route: 048
  2. RENVELA [Concomitant]
     Active Substance: SEVELAMER CARBONATE
  3. MS CONTIN [Suspect]
     Active Substance: MORPHINE SULFATE
     Indication: PAIN
     Dosage: DATES OF USE - CHRONIC?FREQUENCY - NIGHTLY?DOSE - 30MG 12HR
     Route: 048
  4. SENSIPAR [Concomitant]
     Active Substance: CINACALCET HYDROCHLORIDE
  5. GABAPENTIN. [Concomitant]
     Active Substance: GABAPENTIN
  6. CYMBALTA [Concomitant]
     Active Substance: DULOXETINE HYDROCHLORIDE
  7. ASA [Concomitant]
     Active Substance: ASPIRIN
  8. VOLTAREN [Concomitant]
     Active Substance: DICLOFENAC SODIUM
  9. REMERON [Concomitant]
     Active Substance: MIRTAZAPINE
  10. SYNTHROID [Concomitant]
     Active Substance: LEVOTHYROXINE SODIUM

REACTIONS (6)
  - Hypoxia [None]
  - Somnolence [None]
  - Fluid overload [None]
  - Anxiety [None]
  - Multiple drug therapy [None]
  - Treatment noncompliance [None]

NARRATIVE: CASE EVENT DATE: 20170320
